FAERS Safety Report 8733716 (Version 2)
Quarter: 2013Q1

REPORT INFORMATION
  Report Type: Report from Study
  Country: AU (occurrence: AU)
  Receive Date: 20120821
  Receipt Date: 20130208
  Transmission Date: 20140127
  Serious: Yes (Hospitalization)
  Sender: FDA-Public Use
  Company Number: PHHY2012AU071440

PATIENT
  Sex: Male

DRUGS (1)
  1. CLOZARIL [Suspect]
     Dosage: 125 MG
     Dates: start: 20110419

REACTIONS (3)
  - Schizophrenia [Unknown]
  - Decreased appetite [Unknown]
  - Fatigue [Unknown]
